FAERS Safety Report 5637318-0 (Version None)
Quarter: 2008Q1

REPORT INFORMATION
  Report Type: 
  Country: None (occurrence: None)
  Receive Date: 20080225
  Receipt Date: 20080213
  Transmission Date: 20080703
  Serious: Yes (Other)
  Sender: FDA-Public Use
  Company Number: FR-PFIZER INC-2007095537

PATIENT
  Sex: Male
  Weight: 67.8 kg

DRUGS (2)
  1. CHANTIX [Suspect]
     Indication: SMOKING CESSATION THERAPY
     Route: 048
     Dates: start: 20071018, end: 20071030
  2. AUBEPINE [Concomitant]
     Route: 048

REACTIONS (23)
  - ABDOMINAL DISCOMFORT [None]
  - ABDOMINAL PAIN [None]
  - ACNE [None]
  - ASTHENIA [None]
  - CHEST PAIN [None]
  - ERUCTATION [None]
  - EYE PAIN [None]
  - FEELING COLD [None]
  - FUNGAL INFECTION [None]
  - HYPERHIDROSIS [None]
  - MALAISE [None]
  - PHOTOPHOBIA [None]
  - POLLAKIURIA [None]
  - POLYURIA [None]
  - PRURITUS [None]
  - PYREXIA [None]
  - RASH [None]
  - SINUSITIS [None]
  - STAPHYLOCOCCAL ABSCESS [None]
  - THIRST [None]
  - TINNITUS [None]
  - TONGUE BLACK HAIRY [None]
  - VERTIGO [None]
